FAERS Safety Report 9900989 (Version 1)
Quarter: 2014Q1

REPORT INFORMATION
  Report Type: Report from Study
  Country: US (occurrence: US)
  Receive Date: 20140217
  Receipt Date: 20140217
  Transmission Date: 20141002
  Serious: No
  Sender: FDA-Public Use
  Company Number: US-ABBVIE-13P-163-1085615-00

PATIENT
  Age: 54 Year
  Sex: Female
  Weight: 68.1 kg

DRUGS (2)
  1. SIMCOR 500/40 [Suspect]
     Indication: BLOOD CHOLESTEROL INCREASED
     Dosage: 500/40
     Dates: start: 20130429
  2. THYROID [Concomitant]
     Indication: PRODUCT USED FOR UNKNOWN INDICATION

REACTIONS (2)
  - Rash papular [Not Recovered/Not Resolved]
  - Rash pruritic [Not Recovered/Not Resolved]
